FAERS Safety Report 9403635 (Version 1)
Quarter: 2013Q3

REPORT INFORMATION
  Report Type: Spontaneous
  Country: US (occurrence: US)
  Receive Date: 20130715
  Receipt Date: 20130715
  Transmission Date: 20140515
  Serious: Yes (Other)
  Sender: FDA-Public Use
  Company Number: US-BRISTOL-MYERS SQUIBB COMPANY-19088186

PATIENT
  Age: 83 Year
  Sex: Male
  Weight: 85.71 kg

DRUGS (5)
  1. METFORMIN HCL [Suspect]
     Indication: TYPE 2 DIABETES MELLITUS
     Dosage: 2003/2004. REDUCED TO 1000MG/D
     Dates: start: 2003
  2. JANUVIA [Suspect]
     Dosage: REDUCED TO 50MG/D
  3. PLAVIX [Concomitant]
  4. QUINAPRIL [Concomitant]
  5. BABY ASPIRIN [Concomitant]

REACTIONS (3)
  - Glomerular filtration rate decreased [Unknown]
  - Blood creatinine increased [Unknown]
  - Coronary arterial stent insertion [Unknown]
